FAERS Safety Report 9717154 (Version 2)
Quarter: 2013Q4

REPORT INFORMATION
  Report Type: Report from Study
  Country: IT (occurrence: IT)
  Receive Date: 20131127
  Receipt Date: 20131215
  Transmission Date: 20140711
  Serious: Yes (Hospitalization)
  Sender: FDA-Public Use
  Company Number: IT-PFIZER INC-2013332165

PATIENT
  Age: 61 Year
  Sex: Male
  Weight: 58 kg

DRUGS (7)
  1. SUTENT [Suspect]
     Indication: RENAL CANCER
     Dosage: 50 MG, ONCE DAILY, CYCLIC (4 WEEKS ON, 2 WEEKS OFF)
     Route: 048
     Dates: start: 20131015, end: 20131111
  2. MEGACE [Concomitant]
     Indication: DECREASED APPETITE
     Dosage: 160 MG, 2X/DAY
     Route: 048
     Dates: start: 20130723, end: 20131119
  3. RABEPRAZOLE [Concomitant]
     Indication: GASTRITIS PROPHYLAXIS
     Dosage: 20 MG, 1X/DAY
     Route: 048
     Dates: start: 20130717
  4. METOCLOPRAMIDE [Concomitant]
     Indication: DYSPEPSIA
     Dosage: 10 MG, 2X/DAY
     Route: 048
     Dates: start: 20130822
  5. LEVOTHYROXINE [Concomitant]
     Indication: HYPOTHYROIDISM
     Dosage: 25 UG, 1X/DAY
     Route: 048
     Dates: start: 20131015
  6. DELTACORTENE [Concomitant]
     Indication: DECREASED APPETITE
     Dosage: 5 MG, 1X/DAY
     Route: 048
     Dates: start: 20130817
  7. LUVION [Concomitant]
     Indication: OEDEMA
     Dosage: 100 MG, 1X/DAY
     Route: 048
     Dates: start: 20130527

REACTIONS (1)
  - Pneumothorax spontaneous [Recovered/Resolved]
